FAERS Safety Report 9680064 (Version 2)
Quarter: 2013Q4

REPORT INFORMATION
  Report Type: Spontaneous
  Country: FR (occurrence: FR)
  Receive Date: 20131111
  Receipt Date: 20131210
  Transmission Date: 20140711
  Serious: Yes (Hospitalization, Congenital Anomaly)
  Sender: FDA-Public Use
  Company Number: FR-ROCHE-1297987

PATIENT
  Age: 0 Day
  Sex: Female
  Weight: 2 kg

DRUGS (8)
  1. CELLCEPT [Suspect]
     Indication: PRODUCT USED FOR UNKNOWN INDICATION
     Dosage: 250 MG
     Route: 064
     Dates: end: 20120312
  2. CELLCEPT [Suspect]
     Indication: PANCREAS TRANSPLANT
  3. RAPAMUNE [Suspect]
     Indication: PRODUCT USED FOR UNKNOWN INDICATION
     Route: 064
     Dates: end: 20120312
  4. RAPAMUNE [Suspect]
     Indication: PANCREAS TRANSPLANT
  5. APROVEL [Concomitant]
  6. CORTANCYL [Concomitant]
  7. ASPEGIC (FRANCE) [Concomitant]
  8. OMEPRAZOLE [Concomitant]

REACTIONS (2)
  - Pulmonary artery atresia [Recovered/Resolved]
  - Foetal exposure during pregnancy [Not Recovered/Not Resolved]
